FAERS Safety Report 8414641-8 (Version None)
Quarter: 2012Q2

REPORT INFORMATION
  Report Type: 
  Country: None (occurrence: None)
  Receive Date: 20120605
  Receipt Date: 20120601
  Transmission Date: 20120825
  Serious: Yes (Other)
  Sender: FDA-Public Use
  Company Number: US-PFIZER INC-2012132672

PATIENT
  Sex: Female
  Weight: 19 kg

DRUGS (1)
  1. GENOTROPIN [Suspect]
     Indication: BLOOD GROWTH HORMONE ABNORMAL
     Dosage: 0.8 MG, 1X/DAY
     Dates: start: 20120301

REACTIONS (2)
  - HYPERTROPHIC CARDIOMYOPATHY [None]
  - BURNING SENSATION [None]
